FAERS Safety Report 10810449 (Version 1)
Quarter: 2015Q1

REPORT INFORMATION
  Report Type: Report from Study
  Country: PR (occurrence: PR)
  Receive Date: 20150217
  Receipt Date: 20150217
  Transmission Date: 20150721
  Serious: No
  Sender: FDA-Public Use
  Company Number: PR-ABBVIE-14K-131-1214176-00

PATIENT
  Age: 50 Year
  Sex: Male

DRUGS (4)
  1. TIZADINE [Concomitant]
     Indication: PRODUCT USED FOR UNKNOWN INDICATION
     Dosage: 1 DAILY WHEN NECESSARY
     Route: 048
  2. TRAMADOL [Concomitant]
     Active Substance: TRAMADOL
     Indication: PRODUCT USED FOR UNKNOWN INDICATION
     Dosage: 1 EVERY 8 HRS WHEN NECESSARY
     Route: 048
  3. HUMIRA [Suspect]
     Active Substance: ADALIMUMAB
     Indication: CROHN^S DISEASE
     Route: 058
     Dates: start: 20140305
  4. PREDNISONE. [Concomitant]
     Active Substance: PREDNISONE
     Indication: PRODUCT USED FOR UNKNOWN INDICATION
     Route: 048

REACTIONS (9)
  - Neck pain [Unknown]
  - Headache [Not Recovered/Not Resolved]
  - Headache [Recovered/Resolved]
  - Insomnia [Unknown]
  - Back pain [Not Recovered/Not Resolved]
  - Mobility decreased [Unknown]
  - Musculoskeletal pain [Unknown]
  - Abdominal pain upper [Recovered/Resolved]
  - Pain [Unknown]

NARRATIVE: CASE EVENT DATE: 20140319
